FAERS Safety Report 24933249 (Version 1)
Quarter: 2025Q1

REPORT INFORMATION
  Report Type: Spontaneous
  Country: GB (occurrence: GB)
  Receive Date: 20250206
  Receipt Date: 20250206
  Transmission Date: 20250408
  Serious: No
  Sender: ALKEM
  Company Number: None

PATIENT
  Age: 63 Year
  Sex: Female

DRUGS (2)
  1. GABAPENTIN [Suspect]
     Active Substance: GABAPENTIN
     Indication: Postoperative analgesia
     Dosage: 100 MILLIGRAM, TID (CAPSULE)
     Route: 065
     Dates: end: 20231216
  2. ACETAMINOPHEN [Concomitant]
     Active Substance: ACETAMINOPHEN
     Indication: Postoperative analgesia
     Route: 065
     Dates: start: 20231121, end: 20231221

REACTIONS (1)
  - Asthma [Recovering/Resolving]
